FAERS Safety Report 7400119-7 (Version None)
Quarter: 2011Q2

REPORT INFORMATION
  Report Type: 
  Country: None (occurrence: None)
  Receive Date: 20110407
  Receipt Date: 20100302
  Transmission Date: 20111010
  Serious: Yes (Other)
  Sender: FDA-Public Use
  Company Number: US-KINGPHARMUSA00001-K201000266

PATIENT
  Age: 57 Year
  Sex: Female
  Weight: 58.957 kg

DRUGS (3)
  1. SKELAXIN [Suspect]
     Indication: PAIN
  2. ZOLOFT [Concomitant]
     Indication: DEPRESSION
     Dosage: UNK
  3. SKELAXIN [Suspect]
     Indication: MUSCLE SPASMS
     Dosage: 800 MG, TID
     Route: 048
     Dates: start: 20100225, end: 20100227

REACTIONS (4)
  - RASH [None]
  - DYSPNOEA [None]
  - URTICARIA [None]
  - ANAPHYLACTIC REACTION [None]
